FAERS Safety Report 6572657-0 (Version None)
Quarter: 2010Q1

REPORT INFORMATION
  Report Type: 
  Country: None (occurrence: None)
  Receive Date: 20100205
  Receipt Date: 20100127
  Transmission Date: 20100710
  Serious: Yes (Hospitalization)
  Sender: FDA-Public Use
  Company Number: DE-ABBOTT-09P-062-0609365-00

PATIENT
  Sex: Female

DRUGS (6)
  1. HUMIRA [Suspect]
     Indication: CROHN'S DISEASE
     Dates: start: 20090304, end: 20091012
  2. INFUSIONS [Concomitant]
     Indication: DRUG USE FOR UNKNOWN INDICATION
  3. ANALGETICS [Concomitant]
     Indication: DRUG USE FOR UNKNOWN INDICATION
  4. PANTOZOL [Concomitant]
     Indication: DRUG USE FOR UNKNOWN INDICATION
  5. FUROSEMID [Concomitant]
     Indication: DRUG USE FOR UNKNOWN INDICATION
  6. CLEXANE [Concomitant]
     Indication: DRUG USE FOR UNKNOWN INDICATION
     Route: 058

REACTIONS (3)
  - ANASTOMOTIC STENOSIS [None]
  - ILEUS [None]
  - SMALL INTESTINAL STENOSIS [None]
